FAERS Safety Report 23607447 (Version 2)
Quarter: 2025Q3

REPORT INFORMATION
  Report Type: Spontaneous
  Country: US (occurrence: US)
  Receive Date: 20240307
  Receipt Date: 20250711
  Transmission Date: 20251021
  Serious: Yes (Hospitalization)
  Sender: SUNOVION
  Company Number: US-SUNOVION-2024SUN000151AA

PATIENT

DRUGS (1)
  1. RETHYMIC [Suspect]
     Active Substance: ALLOGENIC THYMOCYTE-DEPLETED THYMUS TISSUE-AGDC
     Indication: DiGeorge^s syndrome
     Route: 050
     Dates: start: 20240124, end: 20240124

REACTIONS (3)
  - Dehydration [Unknown]
  - Renal disorder [Unknown]
  - Respiratory syncytial virus infection [Recovered/Resolved]
